FAERS Safety Report 18108589 (Version 1)
Quarter: 2020Q3

REPORT INFORMATION
  Report Type: Spontaneous
  Country: LK (occurrence: LK)
  Receive Date: 20200804
  Receipt Date: 20200804
  Transmission Date: 20201103
  Serious: Yes (Death, Other)
  Sender: FDA-Public Use
  Company Number: LK-SA-2020SA201436

PATIENT

DRUGS (12)
  1. DAPSONE. [Suspect]
     Active Substance: DAPSONE
     Indication: LEPROMATOUS LEPROSY
     Dosage: 100 MG, QD
  2. RIFAMPICIN [Suspect]
     Active Substance: RIFAMPIN
     Indication: LEPROMATOUS LEPROSY
     Dosage: 450 MG, QD
  3. RIFAMPICIN [Suspect]
     Active Substance: RIFAMPIN
     Indication: BORDERLINE LEPROSY
  4. PYRAZINAMIDE. [Suspect]
     Active Substance: PYRAZINAMIDE
     Indication: PULMONARY TUBERCULOSIS
     Dosage: 1500 MG, QD
  5. RIFAMPICIN [Suspect]
     Active Substance: RIFAMPIN
     Indication: PULMONARY TUBERCULOSIS
     Dosage: 600 MG, QM
  6. DAPSONE. [Suspect]
     Active Substance: DAPSONE
     Indication: BORDERLINE LEPROSY
  7. CLOFAZIMINE [Suspect]
     Active Substance: CLOFAZIMINE
     Indication: BORDERLINE LEPROSY
     Dosage: 300 MG, QM
  8. ISONIAZID. [Suspect]
     Active Substance: ISONIAZID
     Indication: PULMONARY TUBERCULOSIS
     Dosage: 300 MG, QD
  9. CLOFAZIMINE [Suspect]
     Active Substance: CLOFAZIMINE
     Indication: LEPROMATOUS LEPROSY
     Dosage: 50 MG, QD
  10. PREDNISOLONE. [Suspect]
     Active Substance: PREDNISOLONE
     Indication: BORDERLINE LEPROSY
     Dosage: TAILING?OFF OF DOSE STARTING FROM 40 MG DAILY
  11. PREDNISOLONE. [Suspect]
     Active Substance: PREDNISOLONE
     Indication: LEPROMATOUS LEPROSY
  12. ETHAMBUTOL [Suspect]
     Active Substance: ETHAMBUTOL HYDROCHLORIDE
     Indication: PULMONARY TUBERCULOSIS
     Dosage: 800 MG, QD

REACTIONS (4)
  - Treatment noncompliance [Unknown]
  - Pyrexia [Fatal]
  - Pulmonary tuberculosis [Fatal]
  - Productive cough [Fatal]
